FAERS Safety Report 6938977-2 (Version None)
Quarter: 2010Q3

REPORT INFORMATION
  Report Type: 
  Country: None (occurrence: None)
  Receive Date: 20100824
  Receipt Date: 19990722
  Transmission Date: 20110219
  Serious: Yes (Hospitalization)
  Sender: FDA-Public Use
  Company Number: GB-US-EMD SERONO, INC.-7013740

PATIENT
  Sex: Female

DRUGS (4)
  1. METRODIN [Suspect]
     Indication: INFERTILITY
     Route: 065
     Dates: start: 19920628, end: 19920628
  2. METRODIN [Suspect]
     Route: 065
     Dates: start: 19920630, end: 19920630
  3. METRODIN [Suspect]
     Route: 065
     Dates: start: 19920702, end: 19920702
  4. HUMAN CHORIONIC GONADOTROPHIN [Suspect]
     Indication: INFERTILITY
     Route: 065
     Dates: start: 19920701, end: 19920701

REACTIONS (4)
  - DRUG ADMINISTRATION ERROR [None]
  - INFANTILE ASTHMA [None]
  - OVERDOSE [None]
  - PREMATURE BABY [None]
